FAERS Safety Report 24292123 (Version 1)
Quarter: 2024Q3

REPORT INFORMATION
  Report Type: Spontaneous
  Country: US (occurrence: None)
  Receive Date: 20240906
  Receipt Date: 20240906
  Transmission Date: 20241017
  Serious: No
  Sender: DOMPE FARMACEUTICI
  Company Number: US-FARMAPROD-202307-2002

PATIENT
  Sex: Female

DRUGS (35)
  1. OXERVATE [Suspect]
     Active Substance: CENEGERMIN-BKBJ
     Indication: Neurotrophic keratopathy
     Route: 047
     Dates: start: 20230328, end: 20230523
  2. OXERVATE [Suspect]
     Active Substance: CENEGERMIN-BKBJ
     Route: 047
     Dates: start: 20230627, end: 20230822
  3. OXERVATE [Suspect]
     Active Substance: CENEGERMIN-BKBJ
     Route: 047
     Dates: start: 20230823, end: 20231016
  4. OXERVATE [Suspect]
     Active Substance: CENEGERMIN-BKBJ
     Route: 047
     Dates: start: 20231017
  5. OXERVATE [Suspect]
     Active Substance: CENEGERMIN-BKBJ
  6. OXERVATE [Suspect]
     Active Substance: CENEGERMIN-BKBJ
  7. OXERVATE [Suspect]
     Active Substance: CENEGERMIN-BKBJ
  8. OXERVATE [Suspect]
     Active Substance: CENEGERMIN-BKBJ
  9. OXERVATE [Suspect]
     Active Substance: CENEGERMIN-BKBJ
  10. OXERVATE [Suspect]
     Active Substance: CENEGERMIN-BKBJ
  11. OXERVATE [Suspect]
     Active Substance: CENEGERMIN-BKBJ
  12. OXERVATE [Suspect]
     Active Substance: CENEGERMIN-BKBJ
  13. VANCOMYCIN [Concomitant]
     Active Substance: VANCOMYCIN
     Route: 047
  14. POLYMYXIN B SULFATE TRIMETHOPRIM [Concomitant]
  15. MELOXICAM [Concomitant]
     Active Substance: MELOXICAM
  16. FUROSEMIDE [Concomitant]
     Active Substance: FUROSEMIDE
  17. PROBIOTIC 4X [Concomitant]
     Dosage: 10 MG-15 MG
  18. VITAMINS [Concomitant]
     Active Substance: VITAMINS
     Dosage: 18 MG-0.4 MG
  19. MESALAMINE [Concomitant]
     Active Substance: MESALAMINE
  20. ATORVASTATIN CALCIUM [Concomitant]
     Active Substance: ATORVASTATIN CALCIUM
  21. ASPIRIN [Concomitant]
     Active Substance: ASPIRIN
  22. AMLODIPINE BESYLATE [Concomitant]
     Active Substance: AMLODIPINE BESYLATE
  23. METOPROLOL SUCCINATE [Concomitant]
     Active Substance: METOPROLOL SUCCINATE
  24. VITAMIN D3 [Concomitant]
     Active Substance: CHOLECALCIFEROL
  25. VALACYCLOVIR [Concomitant]
     Active Substance: VALACYCLOVIR HYDROCHLORIDE
  26. LOSARTAN POTASSIUM [Concomitant]
     Active Substance: LOSARTAN POTASSIUM
  27. VITAMIN B12 [Concomitant]
     Active Substance: CYANOCOBALAMIN
  28. MAGNESIUM OXIDE [Concomitant]
     Active Substance: MAGNESIUM OXIDE
  29. OMEPRAZOLE [Concomitant]
     Active Substance: OMEPRAZOLE
  30. RHOPRESSA [Concomitant]
     Active Substance: NETARSUDIL MESYLATE
  31. BRIMONIDINE TARTRATE [Concomitant]
     Active Substance: BRIMONIDINE TARTRATE
  32. PREDNISOLONE-NEPAFENAC [Concomitant]
  33. MOXIFLOXACIN [Concomitant]
     Active Substance: MOXIFLOXACIN
  34. PREDNISONE [Concomitant]
     Active Substance: PREDNISONE
     Dosage: DOSE PACK.
  35. AZELASTINE HYDROCHLORIDE [Concomitant]
     Active Substance: AZELASTINE HYDROCHLORIDE

REACTIONS (2)
  - Off label use [Unknown]
  - Tooth infection [Unknown]
